FAERS Safety Report 18131530 (Version 5)
Quarter: 2021Q2

REPORT INFORMATION
  Report Type: Other
  Country: US (occurrence: US)
  Receive Date: 20200810
  Receipt Date: 20210531
  Transmission Date: 20210717
  Serious: Yes (Hospitalization, Other)
  Sender: FDA-Public Use
  Company Number: US-ROCHE-2231450

PATIENT
  Age: 36 Year
  Sex: Female
  Weight: 113.5 kg

DRUGS (10)
  1. BACLOFEN. [Concomitant]
     Active Substance: BACLOFEN
     Indication: MUSCLE SPASMS
     Dosage: ONGOING?YES
     Route: 048
     Dates: start: 201806
  2. AMPYRA [Concomitant]
     Active Substance: DALFAMPRIDINE
     Dosage: ONGOING?YES
     Route: 048
     Dates: start: 201806
  3. BYSTOLIC [Concomitant]
     Active Substance: NEBIVOLOL HYDROCHLORIDE
     Indication: AUTONOMIC NERVOUS SYSTEM IMBALANCE
     Dosage: ONGOING?YES
     Route: 048
     Dates: start: 201803
  4. FLOMAX [Concomitant]
     Active Substance: TAMSULOSIN HYDROCHLORIDE
     Indication: URINARY RETENTION
     Dosage: YES
     Route: 048
     Dates: start: 201807
  5. NORMAL SALINE [Concomitant]
     Active Substance: SODIUM CHLORIDE
     Indication: AUTONOMIC NERVOUS SYSTEM IMBALANCE
     Dosage: 1000 CC
     Route: 042
     Dates: start: 2018
  6. AMPYRA [Concomitant]
     Active Substance: DALFAMPRIDINE
     Indication: MULTIPLE SCLEROSIS
     Route: 048
     Dates: start: 201807
  7. OCREVUS [Suspect]
     Active Substance: OCRELIZUMAB
     Indication: RELAPSING-REMITTING MULTIPLE SCLEROSIS
     Dosage: DATE OF TREATMENT WAS 09/JUL/2018, 23/JUL/2018, 28/JAN/2019, 26/JUL/2019, 28/JAN/2020, 10/SEP/2020.
     Route: 042
     Dates: start: 201807
  8. OCREVUS [Suspect]
     Active Substance: OCRELIZUMAB
     Dosage: ONGOING: YES
     Route: 042
     Dates: start: 20180816
  9. VALIUM [Concomitant]
     Active Substance: DIAZEPAM
     Indication: MUSCLE SPASMS
     Dosage: YES
     Route: 048
     Dates: start: 201804
  10. SYNTHROID [Concomitant]
     Active Substance: LEVOTHYROXINE SODIUM
     Dosage: 300 MCG
     Route: 048
     Dates: start: 2000

REACTIONS (9)
  - Asthenia [Not Recovered/Not Resolved]
  - Fatigue [Recovered/Resolved]
  - Pruritus [Recovered/Resolved]
  - Multiple sclerosis relapse [Not Recovered/Not Resolved]
  - Herpes zoster [Recovered/Resolved]
  - Multiple sclerosis [Unknown]
  - Muscular weakness [Recovered/Resolved]
  - Abdominal discomfort [Recovered/Resolved]
  - Anal incontinence [Recovering/Resolving]

NARRATIVE: CASE EVENT DATE: 201807
